FAERS Safety Report 10064531 (Version 3)
Quarter: 2014Q2

REPORT INFORMATION
  Report Type: Report from Study
  Country: US (occurrence: US)
  Receive Date: 20140408
  Receipt Date: 20140418
  Transmission Date: 20141212
  Serious: Yes (Hospitalization, Other)
  Sender: FDA-Public Use
  Company Number: US-BRISTOL-MYERS SQUIBB COMPANY-19177310

PATIENT
  Age: 71 Year
  Sex: Male
  Weight: 105.2 kg

DRUGS (2)
  1. IPILIMUMAB [Suspect]
     Indication: METASTATIC MALIGNANT MELANOMA
     Dosage: DAY 3
     Route: 042
     Dates: start: 20130522
  2. CYTOXAN [Suspect]
     Indication: METASTATIC MALIGNANT MELANOMA
     Dosage: DAY 1
     Route: 048
     Dates: start: 20130520

REACTIONS (2)
  - Diarrhoea [Recovered/Resolved]
  - Pulmonary embolism [Unknown]
